FAERS Safety Report 4855896-6 (Version None)
Quarter: 2005Q4

REPORT INFORMATION
  Report Type: 
  Country: None (occurrence: None)
  Receive Date: 20051216
  Receipt Date: 20051110
  Transmission Date: 20060501
  Serious: Yes (Life-Threatening, Hospitalization, Other)
  Sender: FDA-Public Use
  Company Number: US-GLAXOSMITHKLINE-A0581840A

PATIENT
  Age: 28 Year
  Sex: Female
  Weight: 44.6 kg

DRUGS (2)
  1. WELLBUTRIN [Suspect]
     Indication: DEPRESSION
     Dosage: 150MG PER DAY
     Route: 048
     Dates: start: 20050101, end: 20050101
  2. MIRCETTE [Concomitant]
     Indication: CONTRACEPTION
     Dosage: 1TAB PER DAY
     Route: 048
     Dates: start: 20050101

REACTIONS (6)
  - AGITATION [None]
  - IRRITABILITY [None]
  - LOSS OF CONSCIOUSNESS [None]
  - MALAISE [None]
  - OVERDOSE [None]
  - SUICIDE ATTEMPT [None]
